FAERS Safety Report 14323819 (Version 1)
Quarter: 2017Q4

REPORT INFORMATION
  Report Type: Spontaneous
  Country: US (occurrence: US)
  Receive Date: 20171222
  Receipt Date: 20171222
  Transmission Date: 20180321
  Serious: Yes (Other)
  Sender: FDA-Public Use
  Company Number: None

PATIENT
  Age: 58 Year
  Sex: Female

DRUGS (1)
  1. FORTEO [Suspect]
     Active Substance: TERIPARATIDE
     Indication: OSTEOPOROSIS
     Route: 058
     Dates: start: 20170101, end: 20171121

REACTIONS (8)
  - Constipation [None]
  - Insomnia [None]
  - Infusion site erythema [None]
  - Heart rate increased [None]
  - Fatigue [None]
  - Muscle spasms [None]
  - Haemorrhage [None]
  - Dizziness [None]

NARRATIVE: CASE EVENT DATE: 20170501
